FAERS Safety Report 11347231 (Version 1)
Quarter: 2015Q3

REPORT INFORMATION
  Report Type: Spontaneous
  Country: TW (occurrence: TW)
  Receive Date: 20150806
  Receipt Date: 20150806
  Transmission Date: 20151125
  Serious: Yes (Other)
  Sender: FDA-Public Use
  Company Number: TW-BAYER-2015-393381

PATIENT
  Sex: Female

DRUGS (1)
  1. ASPIRIN PROTECT 100 ENTERIC COATED TABLET [Suspect]
     Active Substance: ASPIRIN
     Dosage: ALMOST HALF YEAR

REACTIONS (2)
  - Gastric ulcer [None]
  - Gastrointestinal injury [None]

NARRATIVE: CASE EVENT DATE: 2015
